FAERS Safety Report 11100721 (Version 2)
Quarter: 2015Q4

REPORT INFORMATION
  Report Type: Spontaneous
  Country: US (occurrence: US)
  Receive Date: 20150508
  Receipt Date: 20151216
  Transmission Date: 20160304
  Serious: Yes (Death, Life-Threatening)
  Sender: FDA-Public Use
  Company Number: PHHY2015US050722

PATIENT
  Sex: Female

DRUGS (8)
  1. DOPAMINE [Concomitant]
     Active Substance: DOPAMINE\DOPAMINE HYDROCHLORIDE
     Indication: RENAL DISORDER
     Route: 065
  2. DEFEROXAMINE [Suspect]
     Active Substance: DEFEROXAMINE\DEFEROXAMINE MESYLATE
     Indication: HAEMOCHROMATOSIS
     Route: 065
  3. FLUCONAZOLE. [Suspect]
     Active Substance: FLUCONAZOLE
     Indication: CANDIDA INFECTION
     Dosage: FIRST WITH A  LOADING DOSE
     Route: 042
  4. FLUCONAZOLE. [Suspect]
     Active Substance: FLUCONAZOLE
     Indication: URINARY TRACT INFECTION
     Dosage: 10 MG/KG, QD
     Route: 042
  5. IMMUNOGLOBULIN I.V [Suspect]
     Active Substance: HUMAN IMMUNOGLOBULIN G
     Indication: HAEMOCHROMATOSIS
     Dosage: 1 G/KG, (ON DAYS 10, 12 AND 15 OF LIFE)
     Route: 042
  6. ACETYLCYSTEINE. [Suspect]
     Active Substance: ACETYLCYSTEINE
     Indication: HAEMOCHROMATOSIS
     Route: 065
  7. VITAMIN E [Suspect]
     Active Substance: .ALPHA.-TOCOPHEROL
     Indication: HAEMOCHROMATOSIS
     Route: 065
  8. OXACILLIN [Concomitant]
     Active Substance: OXACILLIN SODIUM
     Indication: STAPHYLOCOCCAL INFECTION
     Route: 065

REACTIONS (13)
  - Toxic epidermal necrolysis [Unknown]
  - Skin exfoliation [Unknown]
  - Blister [Unknown]
  - Neonatal multi-organ failure [Fatal]
  - Skin lesion [Unknown]
  - Haematoma [Unknown]
  - Bradycardia neonatal [Fatal]
  - Coagulation test abnormal [Unknown]
  - Fungal test positive [Unknown]
  - Bacterial disease carrier [Unknown]
  - Hyperbilirubinaemia neonatal [Unknown]
  - Abscess [Unknown]
  - Face oedema [Unknown]
